FAERS Safety Report 6199698-X (Version None)
Quarter: 2009Q2

REPORT INFORMATION
  Report Type: 
  Country: None (occurrence: None)
  Receive Date: 20090520
  Receipt Date: 20090520
  Transmission Date: 20091009
  Serious: Yes (Death, Hospitalization)
  Sender: FDA-Public Use
  Company Number: None

PATIENT
  Age: 82 Year
  Sex: Male

DRUGS (15)
  1. WARFARIN SODIUM [Suspect]
     Indication: ATRIAL FIBRILLATION
     Dates: start: 20090302, end: 20090408
  2. BRIMONIDINE TARTRATE [Concomitant]
  3. CARBAMIDE PEROXIDE [Concomitant]
  4. DIAPER ADULT [Concomitant]
  5. DIGOXIN [Concomitant]
  6. DORZOLALMIDE 2/TIMOLOL [Concomitant]
  7. FOLIC ACID [Concomitant]
  8. HC/NEOMYCIN/POLYMYXIN [Concomitant]
  9. ACETAMINOPHEN AND HYDROCODONE BITARTRATE [Concomitant]
  10. METOPROLOL TARTRATE [Concomitant]
  11. PHENYTOIN NA (DILANTIN) [Concomitant]
  12. PREDNISOLONE ACETATE [Concomitant]
  13. SIMVASTATIN [Concomitant]
  14. TRAVOPROST Z [Concomitant]
  15. COUMADIN [Concomitant]

REACTIONS (14)
  - ANXIETY [None]
  - CARDIAC FAILURE CONGESTIVE [None]
  - CEREBROVASCULAR DISORDER [None]
  - CONVULSION [None]
  - DEAFNESS NEUROSENSORY [None]
  - HAEMOGLOBIN DECREASED [None]
  - HAEMOPTYSIS [None]
  - INTERNATIONAL NORMALISED RATIO INCREASED [None]
  - METASTASES TO BONE [None]
  - NON-SMALL CELL LUNG CANCER [None]
  - OPTIC ISCHAEMIC NEUROPATHY [None]
  - PNEUMOTHORAX [None]
  - PROSTATE CANCER [None]
  - URINARY INCONTINENCE [None]
